FAERS Safety Report 5203705-8 (Version None)
Quarter: 2007Q1

REPORT INFORMATION
  Report Type: 
  Country: None (occurrence: None)
  Receive Date: 20070105
  Receipt Date: 20070105
  Transmission Date: 20070707
  Serious: Yes (Hospitalization)
  Sender: FDA-Public Use
  Company Number: None

PATIENT
  Age: 49 Year
  Sex: Female

DRUGS (4)
  1. CETUXIMAB [Suspect]
     Indication: NEOPLASM MALIGNANT
     Dosage: 538 MG WEEKLY IV
     Route: 042
     Dates: start: 20060921, end: 20070102
  2. PACLITAXEL [Suspect]
     Indication: NEOPLASM MALIGNANT
     Dosage: 86 MG WEEKLY IV
     Route: 042
     Dates: start: 20061023, end: 20070102
  3. CARBOPLATIN [Suspect]
     Indication: NEOPLASM MALIGNANT
     Dosage: 179 MG WEEKLY IV
     Route: 042
     Dates: start: 20061023, end: 20070102
  4. RADIATION [Suspect]
     Indication: NEOPLASM MALIGNANT
     Dosage: 4500 CGY AT 180 CGY
     Dates: start: 20061023, end: 20061229

REACTIONS (6)
  - CHEST DISCOMFORT [None]
  - DRUG HYPERSENSITIVITY [None]
  - INFUSION RELATED REACTION [None]
  - LOSS OF CONSCIOUSNESS [None]
  - NAUSEA [None]
  - TREMOR [None]
